FAERS Safety Report 8230936-5 (Version None)
Quarter: 2012Q1

REPORT INFORMATION
  Report Type: 
  Country: None (occurrence: None)
  Receive Date: 20120323
  Receipt Date: 20120313
  Transmission Date: 20120608
  Serious: Yes (Other)
  Sender: FDA-Public Use
  Company Number: US-ELI_LILLY_AND_COMPANY-US201203004714

PATIENT
  Age: 69 Year
  Sex: Male

DRUGS (2)
  1. DIURETIC                           /00022001/ [Concomitant]
  2. CYMBALTA [Suspect]
     Indication: OSTEOARTHRITIS
     Dosage: 30 MG, QD

REACTIONS (5)
  - FEELING ABNORMAL [None]
  - HALLUCINATION [None]
  - DRUG INEFFECTIVE [None]
  - PARAESTHESIA [None]
  - BLOOD PRESSURE DECREASED [None]
